FAERS Safety Report 9518503 (Version 1)
Quarter: 2013Q3

REPORT INFORMATION
  Report Type: Spontaneous
  Country: US (occurrence: US)
  Receive Date: 20130912
  Receipt Date: 20130912
  Transmission Date: 20140515
  Serious: Yes (Other)
  Sender: FDA-Public Use
  Company Number: US-BAYER-2013-109420

PATIENT
  Age: 25 Year
  Sex: Female

DRUGS (8)
  1. GIANVI [Suspect]
  2. YAZ [Suspect]
  3. OCELLA [Suspect]
  4. DEMEROL [Concomitant]
  5. PHENERGAN [Concomitant]
  6. ACYCLOVIR [ACICLOVIR] [Concomitant]
     Indication: PROPHYLAXIS
  7. LEXAPRO [Concomitant]
  8. ANAPROX DS [Concomitant]

REACTIONS (1)
  - Lacunar infarction [None]
